FAERS Safety Report 7397614-6 (Version None)
Quarter: 2011Q2

REPORT INFORMATION
  Report Type: 
  Country: None (occurrence: None)
  Receive Date: 20110406
  Receipt Date: 20110330
  Transmission Date: 20111010
  Serious: Yes (Other)
  Sender: FDA-Public Use
  Company Number: IT-BRISTOL-MYERS SQUIBB COMPANY-15649247

PATIENT
  Age: 45 Year
  Sex: Male

DRUGS (6)
  1. ALPRAZOLAM [Concomitant]
     Dates: start: 20100701, end: 20110324
  2. RELPAX [Concomitant]
     Dosage: TABS
     Dates: start: 20110207, end: 20110324
  3. EPIVIR [Concomitant]
     Dosage: FILM COATED TABS
     Route: 048
  4. SUSTIVA [Suspect]
     Indication: ANTIRETROVIRAL THERAPY
     Dosage: 1DF: 1UNIT/DAY FILM COATED TABS
     Route: 048
     Dates: start: 20110207, end: 20110324
  5. TOPAMAX [Suspect]
     Indication: EPILEPSY
     Route: 048
     Dates: start: 20031129, end: 20110324
  6. VIREAD [Concomitant]
     Dosage: FILM COATED TABS
     Route: 048

REACTIONS (2)
  - EPILEPSY [None]
  - STRESS [None]
